FAERS Safety Report 8434812-4 (Version None)
Quarter: 2012Q2

REPORT INFORMATION
  Report Type: 
  Country: None (occurrence: None)
  Receive Date: 20120614
  Receipt Date: 20120607
  Transmission Date: 20120825
  Serious: Yes (Other)
  Sender: FDA-Public Use
  Company Number: US-TEVA-342032USA

PATIENT
  Sex: Male

DRUGS (3)
  1. LEVODOPA [Concomitant]
  2. ENTACAPONE [Concomitant]
  3. AZILECT [Suspect]
     Route: 048

REACTIONS (1)
  - BLINDNESS TRANSIENT [None]
